FAERS Safety Report 23444058 (Version 5)
Quarter: 2024Q1

REPORT INFORMATION
  Report Type: Spontaneous
  Country: DE (occurrence: DE)
  Receive Date: 20240125
  Receipt Date: 20240327
  Transmission Date: 20240409
  Serious: Yes (Hospitalization, Other)
  Sender: FDA-Public Use
  Company Number: DE-AMICUS THERAPEUTICS, INC.-AMI_2706

PATIENT
  Sex: Female
  Weight: 83 kg

DRUGS (4)
  1. POMBILITI [Suspect]
     Active Substance: CIPAGLUCOSIDASE ALFA-ATGA
     Indication: Glycogen storage disease type II
     Dosage: 1680 MILLIGRAM, Q2WK
     Route: 042
     Dates: start: 20230921, end: 20240126
  2. POMBILITI [Suspect]
     Active Substance: CIPAGLUCOSIDASE ALFA-ATGA
     Dosage: 1680 MILLIGRAM, Q2WK
     Route: 042
     Dates: start: 20240209
  3. OPFOLDA [Suspect]
     Active Substance: MIGLUSTAT
     Indication: Glycogen storage disease type II
     Dosage: 260 MILLIGRAM, Q2WK
     Route: 048
     Dates: start: 20230921, end: 20240126
  4. OPFOLDA [Suspect]
     Active Substance: MIGLUSTAT
     Dosage: 260 MILLIGRAM, Q2WK
     Route: 048
     Dates: start: 20240209

REACTIONS (5)
  - Cervix carcinoma [Unknown]
  - Viral upper respiratory tract infection [Recovered/Resolved]
  - Intentional dose omission [Recovered/Resolved]
  - Influenza like illness [Recovered/Resolved]
  - Influenza like illness [Recovering/Resolving]

NARRATIVE: CASE EVENT DATE: 20230930
